FAERS Safety Report 17502896 (Version 1)
Quarter: 2020Q1

REPORT INFORMATION
  Report Type: Spontaneous
  Country: US (occurrence: US)
  Receive Date: 20200305
  Receipt Date: 20200305
  Transmission Date: 20200409
  Serious: No
  Sender: FDA-Public Use
  Company Number: US-ROCHE-2264540

PATIENT

DRUGS (1)
  1. XOLAIR [Suspect]
     Active Substance: OMALIZUMAB
     Indication: PRODUCT USED FOR UNKNOWN INDICATION
     Dosage: RECEIVED INJECTION ON 02/JAN/2019, 04/JAN/2019, 09/JAN/2019, 11/JAN/2019 AND 14/JAN/2019.
     Route: 058
     Dates: start: 20181230

REACTIONS (3)
  - Pain [Unknown]
  - Needle issue [Unknown]
  - Product quality issue [Unknown]
